FAERS Safety Report 10865778 (Version 1)
Quarter: 2015Q1

REPORT INFORMATION
  Report Type: Report from Study
  Country: US (occurrence: US)
  Receive Date: 20150224
  Receipt Date: 20150224
  Transmission Date: 20150721
  Serious: No
  Sender: FDA-Public Use
  Company Number: US-MYLANLABS-2014S1011416

PATIENT
  Sex: Female
  Weight: 71.66 kg

DRUGS (6)
  1. AMNESTEEM [Suspect]
     Active Substance: ISOTRETINOIN
     Indication: ACNE
     Dosage: 20 MG, QD
     Route: 048
     Dates: start: 20140306, end: 20140422
  2. TRIAMCINOLON                       /00031901/ [Concomitant]
     Indication: LIP DRY
     Dosage: UNK
  3. LIQUID NITROGEN [Concomitant]
     Active Substance: NITROGEN
     Indication: LIP DRY
     Dosage: UNK
  4. PETROLATUM. [Concomitant]
     Active Substance: PETROLATUM
     Indication: LIP DRY
     Dosage: DR DAN^S LIP BALM
  5. ELIDEL [Concomitant]
     Active Substance: PIMECROLIMUS
     Indication: LIP DRY
     Dosage: UNK
  6. VASELINE                           /00473501/ [Concomitant]
     Indication: LIP DRY
     Dosage: UNK

REACTIONS (1)
  - Lip dry [Recovered/Resolved]

NARRATIVE: CASE EVENT DATE: 2014
